FAERS Safety Report 16334186 (Version 1)
Quarter: 2019Q2

REPORT INFORMATION
  Report Type: Spontaneous
  Country: US (occurrence: US)
  Receive Date: 20190520
  Receipt Date: 20190520
  Transmission Date: 20190711
  Serious: Yes (Hospitalization, Other)
  Sender: FDA-Public Use
  Company Number: US-BAYER-2019-098624

PATIENT
  Sex: Male

DRUGS (5)
  1. CABOMETYX [Suspect]
     Active Substance: CABOZANTINIB S-MALATE
     Indication: RENAL CELL CARCINOMA
     Dosage: 60 MG, QD
     Route: 048
     Dates: start: 20180125
  2. OXYCODONE [Suspect]
     Active Substance: OXYCODONE
     Indication: TUMOUR PAIN
     Dosage: UNK UNK, BID
  3. LOSARTAN. [Concomitant]
     Active Substance: LOSARTAN
  4. CABOMETYX [Suspect]
     Active Substance: CABOZANTINIB S-MALATE
     Indication: RENAL CELL CARCINOMA
     Dosage: 40 MG, QD
     Route: 048
     Dates: start: 20180322
  5. MIRALAX [Suspect]
     Active Substance: POLYETHYLENE GLYCOL 3350
     Indication: CONSTIPATION
     Dosage: UNK UNK, Q2HR (FOR 24 HRS)
     Dates: start: 20180202, end: 20180202

REACTIONS (9)
  - Diverticulum [None]
  - Dizziness [Recovered/Resolved]
  - Pulmonary thrombosis [None]
  - Tumour pain [None]
  - Palmar-plantar erythrodysaesthesia syndrome [Recovering/Resolving]
  - Catheter site haemorrhage [None]
  - Anuria [None]
  - Faecaloma [Recovered/Resolved]
  - Diarrhoea [None]

NARRATIVE: CASE EVENT DATE: 20180202
